FAERS Safety Report 5206373-4 (Version None)
Quarter: 2007Q1

REPORT INFORMATION
  Report Type: 
  Country: None (occurrence: None)
  Receive Date: 20070111
  Receipt Date: 20070102
  Transmission Date: 20070707
  Serious: Yes (Other)
  Sender: FDA-Public Use
  Company Number: US-PFIZER INC-2005132312

PATIENT
  Sex: Female

DRUGS (3)
  1. NEURONTIN [Suspect]
     Indication: PAIN
  2. AMITRIPTYLINE HCL [Suspect]
  3. CHLORAL HYDRATE [Suspect]

REACTIONS (7)
  - ARTERIAL INSUFFICIENCY [None]
  - COMPARTMENT SYNDROME [None]
  - DRUG INEFFECTIVE [None]
  - MULTIPLE DRUG OVERDOSE [None]
  - SUICIDE ATTEMPT [None]
  - THROMBOSIS [None]
  - VENOUS INSUFFICIENCY [None]
